FAERS Safety Report 6611181-3 (Version None)
Quarter: 2010Q1

REPORT INFORMATION
  Report Type: 
  Country: None (occurrence: None)
  Receive Date: 20100301
  Receipt Date: 20100301
  Transmission Date: 20100710
  Serious: Yes (Other)
  Sender: FDA-Public Use
  Company Number: None

PATIENT
  Age: 63 Year
  Sex: Female
  Weight: 56.6996 kg

DRUGS (1)
  1. REMICADE [Suspect]
     Indication: RHEUMATOID ARTHRITIS
     Dosage: REGULAR 4-6 WEEKS INFUSION
     Dates: start: 20090701, end: 20100101

REACTIONS (2)
  - INFUSION RELATED REACTION [None]
  - URTICARIA [None]
